FAERS Safety Report 8907447 (Version 1)
Quarter: 2012Q4

REPORT INFORMATION
  Report Type: 
  Country: US (occurrence: US)
  Receive Date: 20121114
  Receipt Date: 20121114
  Transmission Date: 20130627
  Serious: No
  Sender: FDA-Public Use
  Company Number: US-009507513-1211USA004542

PATIENT
  Sex: Female
  Weight: 77.98 kg

DRUGS (4)
  1. ALENDRONATE SODIUM [Suspect]
     Indication: OSTEOPOROSIS
     Dosage: UNK
     Route: 048
     Dates: start: 2006
  2. OMEGA-3 MARINE TRIGLYCERIDES [Concomitant]
  3. ASCORBIC ACID [Concomitant]
  4. GARLIC [Concomitant]

REACTIONS (3)
  - Constipation [Unknown]
  - Dyspepsia [Unknown]
  - Abdominal discomfort [Unknown]
